FAERS Safety Report 5392336-5 (Version None)
Quarter: 2007Q3

REPORT INFORMATION
  Report Type: 
  Country: None (occurrence: None)
  Receive Date: 20070720
  Receipt Date: 20070712
  Transmission Date: 20080115
  Serious: Yes (Other)
  Sender: FDA-Public Use
  Company Number: JP-MERCK-0707USA02625

PATIENT
  Age: 82 Year

DRUGS (1)
  1. PEPCID RPD [Suspect]
     Route: 048

REACTIONS (1)
  - DEMENTIA [None]
